FAERS Safety Report 14875292 (Version 3)
Quarter: 2020Q4

REPORT INFORMATION
  Report Type: Spontaneous
  Country: US (occurrence: US)
  Receive Date: 20180510
  Receipt Date: 20201014
  Transmission Date: 20210113
  Serious: Yes (Death, Hospitalization)
  Sender: FDA-Public Use
  Company Number: US-JNJFOC-20180511112

PATIENT
  Age: 64 Year
  Sex: Male

DRUGS (3)
  1. XARELTO [Suspect]
     Active Substance: RIVAROXABAN
     Indication: ATRIAL FIBRILLATION
  2. XARELTO [Suspect]
     Active Substance: RIVAROXABAN
     Indication: THROMBOSIS PROPHYLAXIS
     Dosage: 15 MG AND 20MG DAILY
     Route: 048
     Dates: start: 20151113, end: 20160411
  3. XARELTO [Suspect]
     Active Substance: RIVAROXABAN
     Indication: CEREBROVASCULAR ACCIDENT PROPHYLAXIS
     Route: 048
     Dates: start: 2013

REACTIONS (7)
  - Acute kidney injury [Recovering/Resolving]
  - Respiratory failure [Fatal]
  - Diverticulum intestinal haemorrhagic [Recovering/Resolving]
  - Septic shock [Fatal]
  - Cardiac failure congestive [Fatal]
  - Cardiomyopathy [Fatal]
  - Multiple organ dysfunction syndrome [Fatal]

NARRATIVE: CASE EVENT DATE: 201604
